FAERS Safety Report 7610268-6 (Version None)
Quarter: 2011Q3

REPORT INFORMATION
  Report Type: 
  Country: None (occurrence: None)
  Receive Date: 20110706
  Receipt Date: 20110624
  Transmission Date: 20111222
  Serious: Yes (Hospitalization)
  Sender: FDA-Public Use
  Company Number: 1000019534

PATIENT
  Age: 77 Year
  Sex: Male
  Weight: 65 kg

DRUGS (8)
  1. ASS (ACETYLSALICYLIC ACID) (100 MILLIGRAM) (ACETYLSALICYLIC ACID) [Concomitant]
  2. FORMOTEROL W/ BUDESONIDE (FORMOTEROL, BUDESONIDE) (FORMOTEROL, BUDESON [Concomitant]
  3. ROFLUMILAST (ROFLUMILAST) (TABLETS) [Suspect]
     Indication: CHRONIC OBSTRUCTIVE PULMONARY DISEASE
     Dosage: 500 MCG (500 MCG,1 IN 1 D)
     Dates: start: 20110115, end: 20110118
  4. OXYGEN (OXYGEN) (OXYGEN) [Concomitant]
  5. EZETIMIB (EZETIMIBE) (100 MILLIGRAM) (EZETIMIBE) [Concomitant]
  6. HYDROCHLOROTHIAZIDE [Concomitant]
  7. SPIRIVA (TIOTROPIUM BROMIDE) (TIOTROPIUM BROMIDE) [Concomitant]
  8. SYMBICORT (BUDESONIDE, FORMOTEROL FUMARATE) (BUDESONIDE, FORMOTEROL FU [Concomitant]

REACTIONS (8)
  - FLANK PAIN [None]
  - ABDOMINAL PAIN UPPER [None]
  - HEADACHE [None]
  - TREMOR [None]
  - DYSPNOEA [None]
  - MENTAL DISORDER [None]
  - NAUSEA [None]
  - DIARRHOEA [None]
